FAERS Safety Report 4988887-5 (Version None)
Quarter: 2006Q2

REPORT INFORMATION
  Report Type: 
  Country: None (occurrence: None)
  Receive Date: 20060425
  Receipt Date: 20060411
  Transmission Date: 20061013
  Serious: Yes (Other)
  Sender: FDA-Public Use
  Company Number: 200612272BWH

PATIENT
  Age: 78 Year
  Sex: Female

DRUGS (3)
  1. AVELOX [Suspect]
     Indication: BRONCHITIS
     Dosage: 400 MG, QD, INTRAVENOUS
     Route: 042
     Dates: start: 20060408, end: 20060410
  2. ZOSYN [Concomitant]
  3. LINEZOLID [Concomitant]

REACTIONS (1)
  - BLOOD GLUCOSE DECREASED [None]
